FAERS Safety Report 8267382-4 (Version None)
Quarter: 2012Q2

REPORT INFORMATION
  Report Type: 
  Country: None (occurrence: None)
  Receive Date: 20120409
  Receipt Date: 20120402
  Transmission Date: 20120825
  Serious: Yes (Death, Other)
  Sender: FDA-Public Use
  Company Number: PHEH2012US006151

PATIENT
  Sex: Male

DRUGS (6)
  1. EXJADE [Suspect]
     Dosage: 1500 MG, QD
     Route: 048
  2. CELEBREX [Concomitant]
     Indication: PAIN
     Dosage: 100 MG, UNK
     Route: 048
  3. CELEXA [Concomitant]
     Indication: DEPRESSION
     Dosage: 40 MG, UNK
     Route: 048
  4. ALFUZOSIN HCL [Concomitant]
     Indication: BENIGN PROSTATIC HYPERPLASIA
     Dosage: 10 MG, UNK
     Route: 048
  5. RUXOLITINIB [Concomitant]
     Indication: MYELOFIBROSIS
  6. KEFLEX [Concomitant]
     Indication: CELLULITIS
     Dosage: 500 MG, UNK
     Route: 048

REACTIONS (4)
  - ATRIOVENTRICULAR BLOCK COMPLETE [None]
  - LOSS OF CONSCIOUSNESS [None]
  - SERUM FERRITIN INCREASED [None]
  - HAEMOGLOBIN DECREASED [None]
